FAERS Safety Report 16798100 (Version 1)
Quarter: 2019Q4

REPORT INFORMATION
  Report Type: Spontaneous
  Country: US (occurrence: US)
  Receive Date: 20190911
  Receipt Date: 20190911
  Transmission Date: 20200122
  Serious: Yes (Other)
  Sender: FDA-Public Use
  Company Number: None

PATIENT
  Age: 77 Year
  Sex: Female

DRUGS (8)
  1. ATORVASTATIN [Concomitant]
     Active Substance: ATORVASTATIN
  2. MELOXICAM. [Concomitant]
     Active Substance: MELOXICAM
  3. TYLENOL PM [Concomitant]
     Active Substance: ACETAMINOPHEN\DIPHENHYDRAMINE
  4. PROLIA [Suspect]
     Active Substance: DENOSUMAB
     Indication: OSTEOPOROSIS
     Dosage: 60 MG/ML SUBCUTANEOUS EVERY 6 MONTHS
     Route: 058
  5. VITAMIN D [Concomitant]
     Active Substance: VITAMIN D NOS
  6. HAIR/SKIN/NAILS SUPPLEMENT [Concomitant]
  7. LISINOPRIL. [Concomitant]
     Active Substance: LISINOPRIL
  8. PEPCID [Concomitant]
     Active Substance: FAMOTIDINE

REACTIONS (3)
  - Stress fracture [None]
  - Pathological fracture [None]
  - Femur fracture [None]

NARRATIVE: CASE EVENT DATE: 20190418
